FAERS Safety Report 14954513 (Version 1)
Quarter: 2018Q2

REPORT INFORMATION
  Report Type: Other
  Country: NO (occurrence: NO)
  Receive Date: 20180530
  Receipt Date: 20180530
  Transmission Date: 20180711
  Serious: Yes (Death)
  Sender: FDA-Public Use
  Company Number: NO-BIODELIVERY SCIENCES INTERNATIONAL-2016BDSI0079

PATIENT
  Age: 50 Year
  Sex: Male

DRUGS (7)
  1. CARISOPRODOL. [Suspect]
     Active Substance: CARISOPRODOL
  2. FENTANYL UNSPECIFIED [Suspect]
     Active Substance: FENTANYL
     Indication: PRODUCT USED FOR UNKNOWN INDICATION
  3. CODEINE [Suspect]
     Active Substance: CODEINE
  4. MEPROBAMATE. [Suspect]
     Active Substance: MEPROBAMATE
  5. DIAZEPAM. [Suspect]
     Active Substance: DIAZEPAM
  6. PARACETAMOL [Suspect]
     Active Substance: ACETAMINOPHEN
  7. OXAZEPAM. [Suspect]
     Active Substance: OXAZEPAM

REACTIONS (1)
  - Toxicity to various agents [Fatal]
